FAERS Safety Report 25404632 (Version 4)
Quarter: 2025Q3

REPORT INFORMATION
  Report Type: Report from Study
  Country: US (occurrence: US)
  Receive Date: 20250606
  Receipt Date: 20250806
  Transmission Date: 20251021
  Serious: Yes (Other)
  Sender: ACADIA PHARMACEUTICALS
  Company Number: US-ACADIA PHARMACEUTICALS INC.-ACA-2025-PIM-006630

PATIENT
  Sex: Male

DRUGS (1)
  1. NUPLAZID [Suspect]
     Active Substance: PIMAVANSERIN TARTRATE
     Indication: Parkinson^s disease psychosis
     Dosage: 34 MILLIGRAM, ONCE DAILY
     Route: 048
     Dates: start: 20250626

REACTIONS (8)
  - Hallucination, visual [Unknown]
  - Irritability [Unknown]
  - Abnormal behaviour [Unknown]
  - Hypoacusis [Not Recovered/Not Resolved]
  - Memory impairment [Recovered/Resolved]
  - Confusional state [Not Recovered/Not Resolved]
  - Agitation [Recovered/Resolved]
  - Product dose omission issue [Unknown]
